FAERS Safety Report 8234723-3 (Version None)
Quarter: 2012Q1

REPORT INFORMATION
  Report Type: 
  Country: None (occurrence: None)
  Receive Date: 20120326
  Receipt Date: 20120321
  Transmission Date: 20120608
  Serious: Yes (Other)
  Sender: FDA-Public Use
  Company Number: US-PFIZER INC-2012074026

PATIENT
  Sex: Male
  Weight: 98.413 kg

DRUGS (2)
  1. LIPITOR [Suspect]
     Indication: BLOOD CHOLESTEROL INCREASED
     Dosage: 10 MG, 1X/DAY
     Route: 048
     Dates: end: 20120101
  2. INSULIN [Concomitant]
     Dosage: UNK

REACTIONS (5)
  - BLOOD TEST ABNORMAL [None]
  - PLATELET COUNT DECREASED [None]
  - NEOPLASM MALIGNANT [None]
  - SURGERY [None]
  - MUSCLE SPASMS [None]
